FAERS Safety Report 6155445-9 (Version None)
Quarter: 2009Q2

REPORT INFORMATION
  Report Type: 
  Country: None (occurrence: None)
  Receive Date: 20090415
  Receipt Date: 20090407
  Transmission Date: 20091009
  Serious: Yes (Hospitalization, Other)
  Sender: FDA-Public Use
  Company Number: PHHO2006DE01902

PATIENT
  Sex: Male

DRUGS (2)
  1. STI571/CGP57148B T35717+CAPS [Suspect]
     Indication: CHRONIC MYELOID LEUKAEMIA
     Dosage: 400 MG, QD
     Route: 048
     Dates: start: 20001123, end: 20011026
  2. STI571/CGP57148B T35717+CAPS [Suspect]
     Dosage: 600 MG, QD
     Route: 048
     Dates: start: 20011120

REACTIONS (6)
  - ACTINIC KERATOSIS [None]
  - BASAL CELL CARCINOMA [None]
  - MALIGNANT TUMOUR EXCISION [None]
  - SKIN LESION [None]
  - SKIN NEOPLASM EXCISION [None]
  - SQUAMOUS CELL CARCINOMA OF SKIN [None]
